FAERS Safety Report 17865227 (Version 1)
Quarter: 2020Q2

REPORT INFORMATION
  Report Type: Spontaneous
  Country: US (occurrence: US)
  Receive Date: 20200604
  Receipt Date: 20200604
  Transmission Date: 20200714
  Serious: No
  Sender: FDA-Public Use
  Company Number: None

PATIENT
  Age: 73 Year
  Sex: Male

DRUGS (17)
  1. FUROSEMIDE. [Concomitant]
     Active Substance: FUROSEMIDE
  2. ATORVASTATIN [Concomitant]
     Active Substance: ATORVASTATIN
  3. AZITHROMYCIN ANHYDROUS. [Concomitant]
     Active Substance: AZITHROMYCIN ANHYDROUS
  4. CLOBETASOL [Concomitant]
     Active Substance: CLOBETASOL
  5. DILT-XR [Concomitant]
     Active Substance: DILTIAZEM
  6. PRASUGREL. [Concomitant]
     Active Substance: PRASUGREL
  7. METFORMIN [Concomitant]
     Active Substance: METFORMIN HYDROCHLORIDE
  8. KETOCONAZOLE. [Concomitant]
     Active Substance: KETOCONAZOLE
  9. METOPROL SUC [Concomitant]
  10. TAMSULOSIN [Concomitant]
     Active Substance: TAMSULOSIN
  11. TOPIRAMATE. [Concomitant]
     Active Substance: TOPIRAMATE
  12. AMOX/K CLAV [Concomitant]
     Active Substance: AMOXICILLIN\CLAVULANATE POTASSIUM
  13. LISINOPRIL. [Concomitant]
     Active Substance: LISINOPRIL
  14. ESBRIET [Suspect]
     Active Substance: PIRFENIDONE
     Indication: PULMONARY FIBROSIS
     Dosage: ?          OTHER DOSE:STARTER DOSE;?
     Route: 048
     Dates: start: 20200506
  15. METHYLPRED [Concomitant]
     Active Substance: METHYLPREDNISOLONE
  16. CYCLOBENZAPR [Concomitant]
     Active Substance: CYCLOBENZAPRINE
  17. FLUTICASONE. [Concomitant]
     Active Substance: FLUTICASONE

REACTIONS (2)
  - Stent placement [None]
  - Intentional dose omission [None]

NARRATIVE: CASE EVENT DATE: 20200521
